FAERS Safety Report 10724159 (Version 1)
Quarter: 2015Q1

REPORT INFORMATION
  Report Type: Report from Study
  Country: DE (occurrence: DE)
  Receive Date: 20150120
  Receipt Date: 20150120
  Transmission Date: 20150721
  Serious: Yes (Hospitalization)
  Sender: FDA-Public Use
  Company Number: DE-ABBVIE-14K-062-1303483-00

PATIENT
  Age: 48 Year
  Sex: Female
  Weight: 52 kg

DRUGS (7)
  1. PLAVIX [Concomitant]
     Active Substance: CLOPIDOGREL BISULFATE
     Indication: PRODUCT USED FOR UNKNOWN INDICATION
     Dosage: 1-0-0
  2. HEPARIN [Concomitant]
     Active Substance: HEPARIN SODIUM
     Indication: PRODUCT USED FOR UNKNOWN INDICATION
     Dosage: 1-0-1
     Route: 058
  3. BISOPROLOL [Concomitant]
     Active Substance: BISOPROLOL
     Indication: PRODUCT USED FOR UNKNOWN INDICATION
     Dosage: 1-0-0
  4. PREDNISOLONE. [Concomitant]
     Active Substance: PREDNISOLONE
     Indication: PRODUCT USED FOR UNKNOWN INDICATION
     Dosage: 1-0-0
  5. HUMIRA [Suspect]
     Active Substance: ADALIMUMAB
     Indication: CROHN^S DISEASE
     Route: 058
     Dates: start: 20140828
  6. PANTOZOL [Concomitant]
     Active Substance: PANTOPRAZOLE SODIUM
     Indication: PRODUCT USED FOR UNKNOWN INDICATION
     Dosage: 1-0-0
  7. LOPERAMIDE [Concomitant]
     Active Substance: LOPERAMIDE
     Indication: PRODUCT USED FOR UNKNOWN INDICATION
     Dosage: 1-1-1

REACTIONS (12)
  - Peripheral artery stenosis [Unknown]
  - Iliac artery occlusion [Unknown]
  - Red cell distribution width increased [Unknown]
  - Activated partial thromboplastin time prolonged [Recovered/Resolved]
  - White blood cell count increased [Unknown]
  - Renal failure [Unknown]
  - Aortic stenosis [Unknown]
  - Platelet count increased [Unknown]
  - Peripheral coldness [Recovering/Resolving]
  - Pain in extremity [Recovering/Resolving]
  - Lividity [Recovering/Resolving]
  - Faecal calprotectin increased [Unknown]

NARRATIVE: CASE EVENT DATE: 2014
